FAERS Safety Report 18576649 (Version 1)
Quarter: 2020Q4

REPORT INFORMATION
  Report Type: Other
  Country: CN (occurrence: CN)
  Receive Date: 20201203
  Receipt Date: 20201203
  Transmission Date: 20210114
  Serious: Yes (Hospitalization)
  Sender: FDA-Public Use
  Company Number: CN-GENUS_LIFESCIENCES-USA-POI0580202000222

PATIENT
  Age: 66 Year
  Sex: Female

DRUGS (5)
  1. ESOMEPRAZOLE. [Concomitant]
     Active Substance: ESOMEPRAZOLE MAGNESIUM
     Indication: ABDOMINAL DISTENSION
     Dates: start: 2014, end: 2014
  2. PANTOPRAZOLE [Concomitant]
     Active Substance: PANTOPRAZOLE
     Indication: ABDOMINAL DISTENSION
     Dates: start: 2014, end: 2014
  3. YOSPRALA [Suspect]
     Active Substance: ASPIRIN\OMEPRAZOLE
     Dates: start: 201407, end: 2014
  4. YOSPRALA [Suspect]
     Active Substance: ASPIRIN\OMEPRAZOLE
     Indication: ABDOMINAL DISTENSION
     Route: 042
     Dates: start: 201407, end: 201407
  5. YOSPRALA [Suspect]
     Active Substance: ASPIRIN\OMEPRAZOLE
     Dates: start: 201508, end: 20150828

REACTIONS (2)
  - Renal injury [Not Recovered/Not Resolved]
  - Drug reaction with eosinophilia and systemic symptoms [Not Recovered/Not Resolved]

NARRATIVE: CASE EVENT DATE: 201407
